FAERS Safety Report 7332132-2 (Version None)
Quarter: 2011Q1

REPORT INFORMATION
  Report Type: 
  Country: None (occurrence: None)
  Receive Date: 20110304
  Receipt Date: 20110222
  Transmission Date: 20110831
  Serious: Yes (Hospitalization)
  Sender: FDA-Public Use
  Company Number: PHHY2010SE86975

PATIENT
  Sex: Female

DRUGS (1)
  1. ACLASTA [Suspect]
     Indication: OSTEOPOROSIS
     Dosage: 5 MG
     Dates: start: 20101207

REACTIONS (8)
  - ASTHMA [None]
  - COUGH [None]
  - INFLUENZA LIKE ILLNESS [None]
  - DYSPNOEA [None]
  - CHEST DISCOMFORT [None]
  - PYREXIA [None]
  - DRUG INEFFECTIVE [None]
  - CONDITION AGGRAVATED [None]
